FAERS Safety Report 12221365 (Version 2)
Quarter: 2016Q2

REPORT INFORMATION
  Report Type: Spontaneous
  Country: US (occurrence: US)
  Receive Date: 20160330
  Receipt Date: 20160505
  Transmission Date: 20160815
  Serious: No
  Sender: FDA-Public Use
  Company Number: US-PFIZER INC-2016162108

PATIENT
  Age: 64 Year
  Sex: Male

DRUGS (1)
  1. GABAPENTIN. [Suspect]
     Active Substance: GABAPENTIN
     Indication: NEURALGIA
     Dosage: AS NEEDED, UP TO 3,000 MG/DAY

REACTIONS (4)
  - Bradyphrenia [Unknown]
  - Product use issue [Unknown]
  - Judgement impaired [Unknown]
  - Somnolence [Unknown]
